FAERS Safety Report 20034505 (Version 3)
Quarter: 2024Q3

REPORT INFORMATION
  Report Type: Spontaneous
  Country: FR (occurrence: FR)
  Receive Date: 20211104
  Receipt Date: 20240812
  Transmission Date: 20241016
  Serious: Yes (Death, Other)
  Sender: MYLAN
  Company Number: FR-AUROBINDO-AUR-APL-2020-054013

PATIENT
  Age: 74 Year
  Sex: Male
  Weight: 61 kg

DRUGS (10)
  1. AMIODARONE [Suspect]
     Active Substance: AMIODARONE
     Indication: Atrial fibrillation
     Dosage: UNK (1200 MG THEN 400 MG THEN 200 MG)
     Route: 048
     Dates: start: 2016, end: 20160501
  2. CORDARONE [Suspect]
     Active Substance: AMIODARONE HYDROCHLORIDE
     Indication: Arrhythmia
     Dosage: 1 DOSAGE FORM, ONCE A DAY
     Route: 048
  3. CORDARONE [Suspect]
     Active Substance: AMIODARONE HYDROCHLORIDE
     Indication: Atrial fibrillation
     Dosage: UNK (1200 MG THEN 400 MG THEN 200 MG)
     Route: 048
     Dates: start: 2016, end: 20160501
  4. AMIODARONE [Suspect]
     Active Substance: AMIODARONE
     Indication: Atrial fibrillation
     Dosage: UNK (1200 MG THEN 400 MG AND THEN 200 MG)
     Route: 048
     Dates: start: 20160206, end: 20160501
  5. XARELTO [Concomitant]
     Active Substance: RIVAROXABAN
     Indication: Product used for unknown indication
     Dosage: 1 DOSAGE FORM, ONCE A DAY
     Route: 065
  6. XARELTO [Concomitant]
     Active Substance: RIVAROXABAN
     Dosage: UNK UNK, QD
     Route: 065
     Dates: start: 201606, end: 20160613
  7. XARELTO [Concomitant]
     Active Substance: RIVAROXABAN
     Dosage: 20 MILLIGRAM, QD (ONCE A DAY)
     Route: 065
     Dates: start: 20160308
  8. XARELTO [Concomitant]
     Active Substance: RIVAROXABAN
     Dosage: 15 MILLIGRAM, QD (ONCE A DAY)
     Route: 065
     Dates: start: 20160206, end: 201606
  9. TAHOR [Concomitant]
     Active Substance: ATORVASTATIN CALCIUM
     Indication: Dyslipidaemia
     Dosage: 10 MILLIGRAM, QD
     Route: 065
  10. TAHOR [Concomitant]
     Active Substance: ATORVASTATIN CALCIUM
     Indication: Hypercholesterolaemia

REACTIONS (2)
  - Pulmonary fibrosis [Fatal]
  - Product use issue [Unknown]
